FAERS Safety Report 20837230 (Version 1)
Quarter: 2022Q2

REPORT INFORMATION
  Report Type: Spontaneous
  Country: US (occurrence: US)
  Receive Date: 20220517
  Receipt Date: 20220517
  Transmission Date: 20220721
  Serious: No
  Sender: FDA-Public Use
  Company Number: US-ALLERGAN-2108776US

PATIENT
  Age: 74 Year
  Sex: Male

DRUGS (2)
  1. MESALAMINE [Suspect]
     Active Substance: MESALAMINE
     Indication: Colitis ulcerative
     Dosage: UNK
  2. MESALAMINE [Concomitant]
     Active Substance: MESALAMINE
     Dosage: EIGHT OF THOSE PER DAY^, TOOK 8 TABLETS A DAY

REACTIONS (1)
  - Product use issue [Unknown]
